FAERS Safety Report 10335799 (Version 1)
Quarter: 2014Q3

REPORT INFORMATION
  Report Type: Spontaneous
  Country: US (occurrence: US)
  Receive Date: 20140723
  Receipt Date: 20140723
  Transmission Date: 20150326
  Serious: No
  Sender: FDA-Public Use
  Company Number: US-UNITED THERAPEUTICS-UTC-048219

PATIENT
  Age: 49 Year
  Sex: Female
  Weight: 74.84 kg

DRUGS (3)
  1. REMODULIN [Suspect]
     Active Substance: TREPROSTINIL
     Route: 041
     Dates: start: 20110523
  2. ADCIRCA [Concomitant]
     Active Substance: TADALAFIL
  3. TRACLEER [Concomitant]
     Active Substance: BOSENTAN\BOSENTAN MONOHYDRATE

REACTIONS (4)
  - Drug dose omission [Unknown]
  - Hypotension [Unknown]
  - Dizziness [Unknown]
  - Device malfunction [Unknown]

NARRATIVE: CASE EVENT DATE: 20140423
